FAERS Safety Report 9283632 (Version 2)
Quarter: 2013Q2

REPORT INFORMATION
  Report Type: Spontaneous
  Country: GB (occurrence: None)
  Receive Date: 20130506
  Receipt Date: 20130506
  Transmission Date: 20140414
  Serious: Yes (Hospitalization)
  Sender: FDA-Public Use
  Company Number: AUR-APL-2013-03445

PATIENT
  Age: 48 Year
  Sex: Male
  Weight: 104 kg

DRUGS (14)
  1. CLOPIDOGREL [Suspect]
     Indication: PRODUCT USED FOR UNKNOWN INDICATION
     Dates: start: 20130402
  2. ASPIRIN (ACETYLSALICYLIC ACID) [Concomitant]
  3. BISOPROLOL (BISOPROLOL) [Concomitant]
  4. CHLORPHENAMINE (CHLORPHENAMIDE) [Concomitant]
  5. CO-DYDRAMOL (PARAMOL-118) [Concomitant]
  6. EZETIMIBE (EZETIMIBE) (TABLET) [Concomitant]
  7. GLICLAZIDE (GLICLAZIDE) [Concomitant]
  8. LANSOPRAZOLE (LANSOPRAZOLE) [Concomitant]
  9. LOSARTAN (LOSARTAN) [Concomitant]
  10. METRONIDAZOLE (METRONIDAZOLE) [Concomitant]
  11. NICORETTE (NICOTINE) [Concomitant]
  12. NICOTINE (NICOTINE) [Concomitant]
  13. RAMIPRIL (RAMIPRIL) [Concomitant]
  14. SUSTANON (SUSTANON /00418401/ [Concomitant]

REACTIONS (1)
  - Purpura [None]
